FAERS Safety Report 8834624 (Version 1)
Quarter: 2012Q4

REPORT INFORMATION
  Report Type: 
  Country: US (occurrence: US)
  Receive Date: 20121010
  Receipt Date: 20121010
  Transmission Date: 20130627
  Serious: No
  Sender: FDA-Public Use
  Company Number: US-BAYER-2012-105906

PATIENT
  Age: 82 Year
  Sex: Female
  Weight: 66.67 kg

DRUGS (2)
  1. ALEVE CAPLET/TABLET,MIDOL EXTENDED RELIEF CAPLET [Suspect]
     Indication: PAIN
     Dosage: 2 DF, UNK
     Dates: start: 20121005
  2. ANTIHYPERTENSIVES [Concomitant]

REACTIONS (1)
  - Pain [None]
